FAERS Safety Report 23850371 (Version 1)
Quarter: 2024Q2

REPORT INFORMATION
  Report Type: Spontaneous
  Country: US (occurrence: US)
  Receive Date: 20240513
  Receipt Date: 20240513
  Transmission Date: 20240716
  Serious: Yes (Hospitalization)
  Sender: FDA-Public Use
  Company Number: US-BRISTOL-MYERS SQUIBB COMPANY-2024-073459

PATIENT
  Age: 76 Year
  Sex: Male

DRUGS (1)
  1. LENALIDOMIDE [Suspect]
     Active Substance: LENALIDOMIDE
     Indication: Product prescribing issue
     Dosage: FREQUENCY- TAKE 1 CAPSULE BY MOUTH EVERY DAY
     Route: 048

REACTIONS (2)
  - Hospitalisation [Recovering/Resolving]
  - Off label use [Unknown]
